FAERS Safety Report 5770829-6 (Version None)
Quarter: 2008Q2

REPORT INFORMATION
  Report Type: 
  Country: None (occurrence: None)
  Receive Date: 20080613
  Receipt Date: 20080515
  Transmission Date: 20081010
  Serious: No
  Sender: FDA-Public Use
  Company Number: US-ABBOTT-08P-163-0452005-00

PATIENT
  Sex: Female
  Weight: 69.008 kg

DRUGS (3)
  1. HUMIRA [Suspect]
     Dosage: LOADING DOSE
     Route: 058
     Dates: start: 20080301
  2. VITAMINS [Concomitant]
     Indication: DRUG USE FOR UNKNOWN INDICATION
  3. ORTHO TRI-CYCLEN [Concomitant]
     Indication: CONTRACEPTION
     Route: 048

REACTIONS (1)
  - PROCEDURAL COMPLICATION [None]
